FAERS Safety Report 8792644 (Version 2)
Quarter: 2012Q4

REPORT INFORMATION
  Report Type: 
  Country: US (occurrence: US)
  Receive Date: 20120918
  Receipt Date: 20121031
  Transmission Date: 20130627
  Serious: Yes (Death)
  Sender: FDA-Public Use
  Company Number: US-ROCHE-1129331

PATIENT
  Sex: Female

DRUGS (6)
  1. AVASTIN [Suspect]
     Indication: BREAST CANCER
     Route: 042
     Dates: start: 20081208, end: 20091027
  2. AVASTIN [Suspect]
     Route: 042
     Dates: start: 20090224
  3. ADRIAMYCIN [Concomitant]
  4. CYTOXAN [Concomitant]
  5. ABRAXANE [Concomitant]
  6. HERCEPTIN [Concomitant]

REACTIONS (1)
  - Breast cancer [Fatal]
